FAERS Safety Report 4959045-5 (Version None)
Quarter: 2006Q1

REPORT INFORMATION
  Report Type: 
  Country: None (occurrence: None)
  Receive Date: 20060331
  Receipt Date: 20060223
  Transmission Date: 20060701
  Serious: Yes (Hospitalization)
  Sender: FDA-Public Use
  Company Number: SEWYE427124FEB06

PATIENT
  Age: 48 Year
  Sex: Male

DRUGS (3)
  1. ENBREL [Suspect]
     Indication: RHEUMATOID ARTHRITIS
     Dates: start: 20050905, end: 20060208
  2. METHOTREXATE SODIUM [Suspect]
     Dates: start: 20040101, end: 20051227
  3. METHOTREXATE SODIUM [Suspect]
     Dates: start: 20051228, end: 20060208

REACTIONS (9)
  - ASCITES [None]
  - DYSPNOEA [None]
  - FLUID RETENTION [None]
  - GAMMA-GLUTAMYLTRANSFERASE INCREASED [None]
  - HYDROTHORAX [None]
  - OEDEMA PERIPHERAL [None]
  - PERICARDIAL EFFUSION [None]
  - PLEURAL EFFUSION [None]
  - RIGHT VENTRICULAR FAILURE [None]
